FAERS Safety Report 20372232 (Version 1)
Quarter: 2022Q1

REPORT INFORMATION
  Report Type: Report from Study
  Country: CA (occurrence: CA)
  Receive Date: 20220124
  Receipt Date: 20220124
  Transmission Date: 20220423
  Serious: Yes (Hospitalization, Other)
  Sender: FDA-Public Use
  Company Number: CA-ABBVIE-21K-028-4196041-00

PATIENT
  Sex: Female
  Weight: 101 kg

DRUGS (1)
  1. HUMIRA [Suspect]
     Active Substance: ADALIMUMAB
     Indication: Crohn^s disease
     Route: 058
     Dates: end: 20211130

REACTIONS (5)
  - Paraesthesia [Unknown]
  - Lumbar vertebral fracture [Unknown]
  - Lumbar spinal stenosis [Unknown]
  - Multiple sclerosis [Unknown]
  - Demyelination [Unknown]
